FAERS Safety Report 19413017 (Version 1)
Quarter: 2021Q2

REPORT INFORMATION
  Report Type: Spontaneous
  Country: US (occurrence: US)
  Receive Date: 20210614
  Receipt Date: 20210614
  Transmission Date: 20210717
  Serious: No
  Sender: FDA-Public Use
  Company Number: US-GALDERMA-US2021011882

PATIENT
  Age: 25 Year
  Sex: Female

DRUGS (5)
  1. PROACTIV MD ADAPALENE ACNE TREATMENT [Suspect]
     Active Substance: ADAPALENE
     Indication: ACNE
     Dosage: 0.1%
     Route: 061
     Dates: start: 20210508, end: 20210515
  2. PROACTIV MD DAILY OIL CONTROL SPF 30 [Suspect]
     Active Substance: AVOBENZONE\OCTISALATE\OCTOCRYLENE
     Indication: ACNE
     Route: 061
     Dates: start: 20210508, end: 20210515
  3. PROACTIV POST ACNE SCAR GEL [Concomitant]
     Indication: ACNE
     Route: 061
     Dates: start: 20210508, end: 20210515
  4. PROACTIV MD ULTRA GENTLE CLEANSER [Concomitant]
     Indication: ACNE
     Route: 061
     Dates: start: 20210508, end: 20210515
  5. PROACTIV MD ULTRA HYDRATING MOISTURIZER [Concomitant]
     Indication: ACNE
     Route: 061
     Dates: start: 20210508, end: 20210515

REACTIONS (9)
  - Dry skin [Recovering/Resolving]
  - Skin burning sensation [Recovering/Resolving]
  - Chemical burn of skin [Recovering/Resolving]
  - Scab [Recovering/Resolving]
  - Eyelid exfoliation [Recovering/Resolving]
  - Skin wound [Recovering/Resolving]
  - Eye irritation [Recovering/Resolving]
  - Inappropriate schedule of product administration [Recovered/Resolved]
  - Overdose [Recovered/Resolved]

NARRATIVE: CASE EVENT DATE: 20210508
